FAERS Safety Report 5753367-6 (Version None)
Quarter: 2008Q2

REPORT INFORMATION
  Report Type: 
  Country: None (occurrence: None)
  Receive Date: 20080530
  Receipt Date: 20080521
  Transmission Date: 20081010
  Serious: Yes (Other)
  Sender: FDA-Public Use
  Company Number: JP-ELI_LILLY_AND_COMPANY-JP200805004420

PATIENT
  Sex: Female

DRUGS (1)
  1. GEMZAR [Suspect]
     Indication: OVARIAN EPITHELIAL CANCER RECURRENT
     Dosage: 1000 MG/M2, OTHER
     Route: 042

REACTIONS (1)
  - PNEUMONIA [None]
